FAERS Safety Report 17140415 (Version 1)
Quarter: 2019Q4

REPORT INFORMATION
  Report Type: Spontaneous
  Country: US (occurrence: US)
  Receive Date: 20191211
  Receipt Date: 20191211
  Transmission Date: 20200122
  Serious: No
  Sender: FDA-Public Use
  Company Number: US-UCBSA-2016011378

PATIENT
  Sex: Male

DRUGS (4)
  1. CLOBAZAM. [Concomitant]
     Active Substance: CLOBAZAM
     Indication: GENERALISED TONIC-CLONIC SEIZURE
     Dosage: UNKNOWN DOSE
  2. PHENYTOIN. [Concomitant]
     Active Substance: PHENYTOIN
     Indication: GENERALISED TONIC-CLONIC SEIZURE
     Dosage: UNKNOWN DOSE
  3. VIGABATRIN. [Concomitant]
     Active Substance: VIGABATRIN
     Indication: GENERALISED TONIC-CLONIC SEIZURE
     Dosage: UNKNOWN DOSE
  4. LEVETIRACETAM. [Suspect]
     Active Substance: LEVETIRACETAM
     Indication: GENERALISED TONIC-CLONIC SEIZURE
     Dosage: UNKNOWN DOSE

REACTIONS (1)
  - Drug ineffective [Unknown]
